FAERS Safety Report 19306083 (Version 2)
Quarter: 2021Q2

REPORT INFORMATION
  Report Type: Report from Study
  Country: BR (occurrence: BR)
  Receive Date: 20210525
  Receipt Date: 20210610
  Transmission Date: 20210717
  Serious: Yes (Other)
  Sender: FDA-Public Use
  Company Number: NVSC2021BR111391

PATIENT
  Age: 66 Year
  Sex: Female
  Weight: 72 kg

DRUGS (9)
  1. COSENTYX [Suspect]
     Active Substance: SECUKINUMAB
     Dosage: 300 G, QMO (2 PENS OF 150G)
     Route: 058
  2. GLIFAGE [Concomitant]
     Active Substance: METFORMIN HYDROCHLORIDE
     Indication: PRODUCT USED FOR UNKNOWN INDICATION
     Dosage: 500
     Route: 065
  3. PREGABALIN. [Concomitant]
     Active Substance: PREGABALIN
     Dosage: 75 (IN THE MORNING AND IN THE NIGHT)
     Route: 065
  4. PREGABALIN. [Concomitant]
     Active Substance: PREGABALIN
     Indication: PRODUCT USED FOR UNKNOWN INDICATION
     Dosage: 150 (IN THE MORNING AND IN THE NIGHT)
     Route: 065
  5. COSENTYX [Suspect]
     Active Substance: SECUKINUMAB
     Indication: PSORIATIC ARTHROPATHY
     Dosage: 300 MG
     Route: 065
     Dates: start: 20181122
  6. DULOXETINE. [Concomitant]
     Active Substance: DULOXETINE
     Indication: PRODUCT USED FOR UNKNOWN INDICATION
     Dosage: 60.0 (IN THE MORNING AND IN THE NIGHT)
     Route: 065
  7. AAS [Concomitant]
     Active Substance: ASPIRIN
     Indication: PRODUCT USED FOR UNKNOWN INDICATION
     Dosage: 120
     Route: 065
  8. SYNTHROID [Concomitant]
     Active Substance: LEVOTHYROXINE SODIUM
     Indication: PRODUCT USED FOR UNKNOWN INDICATION
     Dosage: 112
     Route: 065
  9. HIGROTON [Concomitant]
     Active Substance: CHLORTHALIDONE
     Indication: PRODUCT USED FOR UNKNOWN INDICATION
     Dosage: 12.5
     Route: 065

REACTIONS (27)
  - Haemorrhage [Not Recovered/Not Resolved]
  - Pain in extremity [Recovering/Resolving]
  - Psoriatic arthropathy [Not Recovered/Not Resolved]
  - Emotional distress [Unknown]
  - Paraesthesia [Recovering/Resolving]
  - Burning sensation [Recovering/Resolving]
  - Angina pectoris [Unknown]
  - Finger deformity [Recovering/Resolving]
  - Pain [Not Recovered/Not Resolved]
  - Sensitive skin [Recovering/Resolving]
  - Fear [Unknown]
  - Nervousness [Unknown]
  - Product dose omission issue [Unknown]
  - Nodule [Recovering/Resolving]
  - Skin hypertrophy [Recovering/Resolving]
  - Skin exfoliation [Not Recovered/Not Resolved]
  - Arthralgia [Recovering/Resolving]
  - Coccydynia [Recovering/Resolving]
  - Skin fissures [Recovering/Resolving]
  - Back pain [Recovering/Resolving]
  - Dry skin [Not Recovered/Not Resolved]
  - Limb discomfort [Not Recovered/Not Resolved]
  - Musculoskeletal pain [Recovering/Resolving]
  - Inflammation [Unknown]
  - Anxiety [Unknown]
  - Swelling [Recovering/Resolving]
  - Psoriasis [Not Recovered/Not Resolved]

NARRATIVE: CASE EVENT DATE: 202104
